FAERS Safety Report 9685704 (Version 2)
Quarter: 2014Q1

REPORT INFORMATION
  Report Type: Spontaneous
  Country: US (occurrence: US)
  Receive Date: 20131113
  Receipt Date: 20140128
  Transmission Date: 20141002
  Serious: No
  Sender: FDA-Public Use
  Company Number: US-PFIZER INC-2013318486

PATIENT
  Age: 75 Year
  Sex: Female

DRUGS (2)
  1. INLYTA [Suspect]
     Indication: RENAL CANCER
     Dosage: 5 MG, UNK
     Dates: start: 20130104
  2. INLYTA [Suspect]
     Dosage: 3 MG, 2X/DAY
     Route: 048

REACTIONS (7)
  - Blood pressure increased [Unknown]
  - Hypoaesthesia [Unknown]
  - Paraesthesia [Unknown]
  - Cataract [Unknown]
  - Hyperkeratosis [Unknown]
  - Skin exfoliation [Unknown]
  - Skin sensitisation [Unknown]
